FAERS Safety Report 7067878 (Version 2)
Quarter: 2014Q1

REPORT INFORMATION
  Report Type: Spontaneous
  Country: US (occurrence: None)
  Receive Date: 20090723
  Receipt Date: 20140123
  Transmission Date: 20141002
  Serious: Yes (Other)
  Sender: FDA-Public Use
  Company Number: 2009S1005528

PATIENT
  Sex: Female

DRUGS (6)
  1. SODIUM PHOSPHATE, DIBASIC\SODIUM PHOSPHATE, MONOBASIC, ANHYDROUS [Suspect]
     Dates: start: 200709, end: 200709
  2. ACTIVELLA (ESTRADIOL, NORETHISTERONE ACETATE) [Concomitant]
  3. CELECOXIB (CELECOXIB) [Concomitant]
  4. MAXALT (RIZATRIPTAN) [Concomitant]
  5. THYROID (THYROID) [Concomitant]
  6. WELLBUTRIN XL (BUPROPION HYDROCHLORIDE)(TABLETS)(BUPROPION HYDROCHLORIDE) [Concomitant]

REACTIONS (1)
  - Blood creatinine increased [None]
